FAERS Safety Report 23029519 (Version 1)
Quarter: 2023Q4

REPORT INFORMATION
  Report Type: Spontaneous
  Country: FR (occurrence: FR)
  Receive Date: 20231004
  Receipt Date: 20231004
  Transmission Date: 20240110
  Serious: Yes (Disabling, Other)
  Sender: FDA-Public Use
  Company Number: FR-TEVA-2023-FR-2931514

PATIENT
  Age: 46 Year
  Sex: Male

DRUGS (13)
  1. METHOTREXATE [Suspect]
     Active Substance: METHOTREXATE
     Indication: Diffuse large B-cell lymphoma
     Route: 065
     Dates: start: 2002
  2. CYCLOPHOSPHAMIDE [Suspect]
     Active Substance: CYCLOPHOSPHAMIDE
     Indication: Diffuse large B-cell lymphoma
     Dosage: ACVBP REGIMEN
     Route: 065
     Dates: start: 2002
  3. PREDNISONE [Suspect]
     Active Substance: PREDNISONE
     Indication: Diffuse large B-cell lymphoma
     Dosage: ACVBP REGIMEN
     Route: 065
     Dates: start: 2002
  4. PREDNISONE [Suspect]
     Active Substance: PREDNISONE
     Indication: Immune thrombocytopenia
     Route: 065
  5. ETOPOSIDE [Suspect]
     Active Substance: ETOPOSIDE
     Indication: Diffuse large B-cell lymphoma
     Route: 065
     Dates: start: 2002
  6. RITUXIMAB [Suspect]
     Active Substance: RITUXIMAB
     Indication: Immune thrombocytopenia
     Route: 065
     Dates: start: 201707
  7. DOXORUBICIN [Concomitant]
     Active Substance: DOXORUBICIN
     Indication: Diffuse large B-cell lymphoma
     Dosage: ACVBP REGIMEN
     Route: 065
     Dates: start: 2002
  8. VINDESINE [Concomitant]
     Active Substance: VINDESINE
     Indication: Diffuse large B-cell lymphoma
     Dosage: ACVBP REGIMEN
     Route: 065
     Dates: start: 2002
  9. BLEOMYCIN [Concomitant]
     Active Substance: BLEOMYCIN SULFATE
     Indication: Diffuse large B-cell lymphoma
     Dosage: ACVBP REGIMEN
     Route: 065
     Dates: start: 2002
  10. CYTARABINE [Concomitant]
     Active Substance: CYTARABINE
     Indication: Diffuse large B-cell lymphoma
     Route: 065
     Dates: start: 2002
  11. IFOSFAMIDE [Concomitant]
     Active Substance: IFOSFAMIDE
     Indication: Diffuse large B-cell lymphoma
     Route: 065
     Dates: start: 2002
  12. Immune-globulin [Concomitant]
     Indication: Immune thrombocytopenia
     Route: 042
  13. VINCRISTINE [Concomitant]
     Active Substance: VINCRISTINE
     Indication: Immune thrombocytopenia
     Dosage: A COURSE
     Route: 065
     Dates: end: 201708

REACTIONS (4)
  - Viral infection [Unknown]
  - Blindness [Unknown]
  - Meningitis aseptic [Unknown]
  - Lymphocytic infiltration [Unknown]
